FAERS Safety Report 24358738 (Version 1)
Quarter: 2024Q3

REPORT INFORMATION
  Report Type: Spontaneous
  Country: US (occurrence: US)
  Receive Date: 20240924
  Receipt Date: 20240924
  Transmission Date: 20241017
  Serious: No
  Sender: PFIZER
  Company Number: US-PFIZER INC-202400196841

PATIENT
  Age: 17 Year
  Sex: Female
  Weight: 111 kg

DRUGS (1)
  1. OXBRYTA [Suspect]
     Active Substance: VOXELOTOR
     Dosage: 1500 MG, DAILY (500 MG, 3 TABLETS, ONCE DAILY)
     Route: 048
     Dates: start: 20230803

REACTIONS (2)
  - Product dose omission issue [Recovered/Resolved]
  - Pain [Unknown]
